FAERS Safety Report 16874350 (Version 1)
Quarter: 2019Q4

REPORT INFORMATION
  Report Type: Report from Study
  Country: US (occurrence: US)
  Receive Date: 20191001
  Receipt Date: 20191001
  Transmission Date: 20200122
  Serious: Yes (Death, Hospitalization, Other)
  Sender: FDA-Public Use
  Company Number: US-INGENUS PHARMACEUTICALS, LLC-2019INF000308

PATIENT
  Age: 62 Year
  Sex: Male

DRUGS (3)
  1. DOCETAXEL. [Suspect]
     Active Substance: DOCETAXEL
     Indication: HORMONE-REFRACTORY PROSTATE CANCER
     Dosage: 75 MILLIGRAM/SQ. METER,  EVERY 3 WEEKS
     Route: 042
  2. PAZOPANIB [Suspect]
     Active Substance: PAZOPANIB
     Indication: HORMONE-REFRACTORY PROSTATE CANCER
     Dosage: 600 MILLIGRAM, QD
     Route: 048
  3. PREDNISONE. [Suspect]
     Active Substance: PREDNISONE
     Indication: HORMONE-REFRACTORY PROSTATE CANCER
     Dosage: 5 MILLIGRAM, BID
     Route: 065

REACTIONS (7)
  - Muscular weakness [Unknown]
  - Dehydration [Unknown]
  - Respiratory failure [Fatal]
  - Pneumonia [Unknown]
  - Neutropenia [Unknown]
  - Pleural effusion [Fatal]
  - Hypocalcaemia [Unknown]
